FAERS Safety Report 4337724-0 (Version None)
Quarter: 2004Q2

REPORT INFORMATION
  Report Type: 
  Country: None (occurrence: None)
  Receive Date: 20040408
  Receipt Date: 20040325
  Transmission Date: 20050107
  Serious: Yes (Death, Hospitalization)
  Sender: FDA-Public Use
  Company Number: D01200301638

PATIENT
  Age: 48 Year
  Sex: Male
  Weight: 62 kg

DRUGS (2)
  1. CISPLATIN [Suspect]
     Indication: SMALL CELL LUNG CANCER EXTENSIVE STAGE
     Dosage: 80 MG/M2 CONT - INTRAVENOUS NOS
     Route: 042
     Dates: start: 20030925, end: 20030925
  2. ETOPOSIDE [Suspect]
     Indication: SMALL CELL LUNG CANCER EXTENSIVE STAGE
     Dosage: 120 MG/M2 GIVEN ON DAYS 1,2, AND 3, IN A 30-MINUTE INFUSION - INTRAVENOUS NOS
     Route: 042
     Dates: start: 20030925, end: 20030927

REACTIONS (3)
  - LUNG ABSCESS [None]
  - MALIGNANT NEOPLASM PROGRESSION [None]
  - SMALL CELL LUNG CANCER STAGE UNSPECIFIED [None]
